FAERS Safety Report 15251689 (Version 2)
Quarter: 2018Q4

REPORT INFORMATION
  Report Type: Spontaneous
  Country: RO (occurrence: RO)
  Receive Date: 20180807
  Receipt Date: 20180828
  Transmission Date: 20190204
  Serious: Yes (Other)
  Sender: FDA-Public Use
  Company Number: RO-MYLANLABS-2018M1059526

PATIENT
  Age: 74 Year
  Sex: Male

DRUGS (3)
  1. ROSUVASTATIN. [Suspect]
     Active Substance: ROSUVASTATIN
     Indication: BLOOD CHOLESTEROL INCREASED
     Dosage: 5 MG, QD
     Route: 048
  2. PYRIDOSTIGMINE [Suspect]
     Active Substance: PYRIDOSTIGMINE
     Indication: MYASTHENIA GRAVIS
     Dosage: 60 MG, TID
  3. NEOSTIGMINE /00045902/ [Suspect]
     Active Substance: NEOSTIGMINE BROMIDE
     Indication: MYASTHENIA GRAVIS
     Dosage: 15 MG, TID

REACTIONS (6)
  - Myopathy [Unknown]
  - Cholinergic syndrome [Unknown]
  - Abdominal pain upper [Unknown]
  - Myasthenia gravis [Unknown]
  - Nausea [Unknown]
  - Intentional product use issue [Unknown]
